FAERS Safety Report 4488243-2 (Version None)
Quarter: 2004Q4

REPORT INFORMATION
  Report Type: 
  Country: None (occurrence: None)
  Receive Date: 20041028
  Receipt Date: 20040824
  Transmission Date: 20050328
  Serious: Yes (Other)
  Sender: FDA-Public Use
  Company Number: PHBS2004JP11286

PATIENT
  Age: 65 Year
  Sex: Male
  Weight: 54 kg

DRUGS (8)
  1. NEORAL [Suspect]
     Indication: STEM CELL TRANSPLANT
     Dosage: 300 MG
     Route: 048
     Dates: start: 20040427, end: 20040428
  2. NEORAL [Suspect]
     Dosage: 200 MG/D
     Route: 048
     Dates: start: 20040429, end: 20040501
  3. NEORAL [Suspect]
     Dosage: 150 MG/D
     Route: 048
     Dates: start: 20040502, end: 20040503
  4. CELLCEPT [Suspect]
     Indication: STEM CELL TRANSPLANT
     Dosage: 1 G/D
     Route: 048
     Dates: start: 20040429, end: 20040506
  5. GRAN [Concomitant]
     Dosage: 450 MG/D
     Route: 042
     Dates: start: 20040429, end: 20040604
  6. PREDONINE [Concomitant]
     Dosage: 30 MG/D
     Route: 048
     Dates: start: 20040503
  7. PROGRAF [Concomitant]
     Dosage: 0.53 MG/D
     Dates: start: 20040506, end: 20040530
  8. PROGRAF [Concomitant]
     Dosage: 2.5-1.5 MG/D
     Route: 048
     Dates: start: 20040531

REACTIONS (3)
  - BLOOD BILIRUBIN INCREASED [None]
  - BLOOD BILIRUBIN UNCONJUGATED INCREASED [None]
  - HAEMOLYTIC ANAEMIA [None]
